FAERS Safety Report 7563176-3 (Version None)
Quarter: 2011Q2

REPORT INFORMATION
  Report Type: 
  Country: None (occurrence: None)
  Receive Date: 20110615
  Receipt Date: 20110531
  Transmission Date: 20111010
  Serious: Yes (Other)
  Sender: FDA-Public Use
  Company Number: AUR-APL-2011-02340

PATIENT
  Age: 59 Year
  Sex: Female

DRUGS (8)
  1. GABAPENTIN [Suspect]
     Indication: PARAESTHESIA
     Dosage: 400MG - QID - ORAL
     Route: 048
  2. MULTI-VITAMIN [Concomitant]
  3. GABAPENTIN [Suspect]
     Indication: PARAESTHESIA
     Dosage: 300MG - TID - ORAL
     Route: 048
  4. PREMPRO [Concomitant]
  5. TRIAMTERENE AND HYDROCHLOROTHIAZIDE [Concomitant]
  6. GLUCOSAMINE [Concomitant]
  7. ATENOLOL [Concomitant]
  8. LEVOTHYROXINE SODIUM [Concomitant]

REACTIONS (4)
  - SOMNOLENCE [None]
  - DIZZINESS [None]
  - ANORGASMIA [None]
  - OEDEMA [None]
